FAERS Safety Report 6366128-4 (Version None)
Quarter: 2009Q3

REPORT INFORMATION
  Report Type: 
  Country: None (occurrence: None)
  Receive Date: 20090921
  Receipt Date: 20090909
  Transmission Date: 20100115
  Serious: Yes (Hospitalization)
  Sender: FDA-Public Use
  Company Number: US-BIOGENIDEC-2009BI021094

PATIENT
  Age: 55 Year
  Sex: Female
  Weight: 90 kg

DRUGS (15)
  1. TYSABRI [Suspect]
     Indication: MULTIPLE SCLEROSIS
     Route: 042
     Dates: start: 20070509
  2. VENLAFAXINE HCL [Concomitant]
     Route: 048
     Dates: start: 20090515
  3. BACTRIM [Concomitant]
     Route: 048
     Dates: start: 20090324, end: 20090403
  4. BACTRIM [Concomitant]
     Route: 048
  5. PLAQUENIL [Concomitant]
     Route: 048
  6. LEVOFLOXACIN [Concomitant]
     Route: 048
     Dates: start: 20081113, end: 20081213
  7. LEVOFLOXACIN [Concomitant]
     Route: 048
  8. LEVOTHYROXINE SODIUM [Concomitant]
     Route: 048
     Dates: start: 20081031
  9. PILOCARPINE HYDROCHLORIDE [Concomitant]
     Route: 048
     Dates: start: 20081031
  10. BACLOFEN [Concomitant]
     Route: 048
     Dates: start: 20080908, end: 20090717
  11. PERCOCET [Concomitant]
     Indication: MIGRAINE
     Route: 048
     Dates: start: 20071025, end: 20090717
  12. ESCITALOPRAM [Concomitant]
     Route: 048
     Dates: start: 20071009, end: 20090717
  13. FIORICET [Concomitant]
     Route: 048
     Dates: start: 20070619, end: 20090717
  14. COPAXONE [Concomitant]
     Route: 058
     Dates: start: 20061006, end: 20090717
  15. CYCLOSPORINE [Concomitant]
     Route: 047

REACTIONS (3)
  - BLOOD POTASSIUM DECREASED [None]
  - MULTIPLE SCLEROSIS [None]
  - VIRAL INFECTION [None]
